FAERS Safety Report 17356720 (Version 2)
Quarter: 2020Q1

REPORT INFORMATION
  Report Type: Report from Study
  Country: BE (occurrence: BE)
  Receive Date: 20200131
  Receipt Date: 20200210
  Transmission Date: 20200409
  Serious: Yes (Hospitalization)
  Sender: FDA-Public Use
  Company Number: BE-TAKEDA-2020TUS005504

PATIENT
  Age: 75 Year
  Sex: Male

DRUGS (4)
  1. RITUXIMAB. [Suspect]
     Active Substance: RITUXIMAB
     Indication: WALDENSTROM^S MACROGLOBULINAEMIA
     Dosage: 795.25 MILLIGRAM
     Route: 042
     Dates: start: 20171004
  2. IXAZOMIB [Suspect]
     Active Substance: IXAZOMIB
     Indication: WALDENSTROM^S MACROGLOBULINAEMIA
     Dosage: 04 MILLIGRAM
     Route: 065
     Dates: start: 20170809
  3. RITUXIMAB. [Suspect]
     Active Substance: RITUXIMAB
     Dosage: 1400 MILLIGRAM
     Route: 058
     Dates: start: 20171102
  4. DEXAMETHASONE. [Concomitant]
     Active Substance: DEXAMETHASONE
     Indication: WALDENSTROM^S MACROGLOBULINAEMIA
     Dosage: 20 MILLIGRAM
     Route: 065
     Dates: start: 20170809

REACTIONS (1)
  - Pneumonia [Not Recovered/Not Resolved]

NARRATIVE: CASE EVENT DATE: 20200124
